FAERS Safety Report 23377569 (Version 1)
Quarter: 2024Q1

REPORT INFORMATION
  Report Type: Spontaneous
  Country: CN (occurrence: CN)
  Receive Date: 20240108
  Receipt Date: 20240108
  Transmission Date: 20240410
  Serious: Yes (Hospitalization, Other)
  Sender: FDA-Public Use
  Company Number: CN-PFIZER INC-202300454532

PATIENT
  Age: 31 Year
  Sex: Male

DRUGS (1)
  1. LORBRENA [Suspect]
     Active Substance: LORLATINIB
     Dosage: 12 COURSES
     Dates: start: 202212

REACTIONS (5)
  - Atrioventricular block second degree [Unknown]
  - Sinus arrest [Unknown]
  - Electrocardiogram T wave inversion [Unknown]
  - Supraventricular extrasystoles [Unknown]
  - Atrial tachycardia [Unknown]
